FAERS Safety Report 11271991 (Version 1)
Quarter: 2015Q3

REPORT INFORMATION
  Report Type: Spontaneous
  Country: US (occurrence: None)
  Receive Date: 20150713
  Receipt Date: 20150713
  Transmission Date: 20151125
  Serious: No
  Sender: FDA-Public Use
  Company Number: None

PATIENT
  Age: 91 Year
  Sex: Male

DRUGS (2)
  1. ETOPOSIDE 50MG MYLAN [Suspect]
     Active Substance: ETOPOSIDE
     Indication: LYMPHOMA
     Dosage: 50 MG DAILY MON-FRI PO
     Route: 048
     Dates: start: 20140820, end: 20150710
  2. CYCLOPHOSPHOMIDE 50MG ROXANE [Suspect]
     Active Substance: CYCLOPHOSPHAMIDE
     Indication: LYMPHOMA
     Dosage: 50 MG DAILY MON-FRI PO
     Route: 048
     Dates: start: 20140820, end: 20150710

REACTIONS (1)
  - Disease progression [None]

NARRATIVE: CASE EVENT DATE: 20150710
